FAERS Safety Report 7630650 (Version 3)
Quarter: 2013Q4

REPORT INFORMATION
  Report Type: Spontaneous
  Country: US (occurrence: US)
  Receive Date: 20101015
  Receipt Date: 20131108
  Transmission Date: 20140711
  Serious: Yes (Other)
  Sender: FDA-Public Use
  Company Number: US-US-EMD SERONO, INC.-7001865

PATIENT
  Age: 46 Year
  Sex: Male
  Weight: 81 kg

DRUGS (6)
  1. REBIF [Suspect]
     Indication: MULTIPLE SCLEROSIS
     Route: 058
     Dates: start: 20051013
  2. ATENOLOL [Concomitant]
     Indication: HYPERTENSION
  3. AMLODIPINE [Concomitant]
     Indication: HYPERTENSION
  4. LORAZEPAM [Concomitant]
     Indication: PERSONALITY DISORDER
  5. CITALOPRAM [Concomitant]
     Indication: PERSONALITY DISORDER
  6. LUNESTA [Concomitant]
     Indication: INSOMNIA

REACTIONS (1)
  - Chronic myeloid leukaemia [Recovering/Resolving]
